FAERS Safety Report 18600000 (Version 1)
Quarter: 2020Q4

REPORT INFORMATION
  Report Type: Spontaneous
  Country: US (occurrence: US)
  Receive Date: 20201209
  Receipt Date: 20201209
  Transmission Date: 20210114
  Serious: No
  Sender: FDA-Public Use
  Company Number: None

PATIENT
  Age: 35 Year
  Sex: Female
  Weight: 63 kg

DRUGS (1)
  1. ALBUTEROL SULFATE INHALATION AEROSOL HFA [Suspect]
     Active Substance: ALBUTEROL SULFATE
     Indication: ASTHMA
     Dosage: ?          QUANTITY:2 PUFF(S);?
     Route: 055
     Dates: start: 20200720, end: 20200916

REACTIONS (3)
  - Product substitution issue [None]
  - Palpitations [None]
  - Ventricular extrasystoles [None]

NARRATIVE: CASE EVENT DATE: 20200720
